FAERS Safety Report 6569828-6 (Version None)
Quarter: 2010Q1

REPORT INFORMATION
  Report Type: 
  Country: None (occurrence: None)
  Receive Date: 20100202
  Receipt Date: 20100202
  Transmission Date: 20100710
  Serious: Yes (Other)
  Sender: FDA-Public Use
  Company Number: None

PATIENT
  Age: 67 Year
  Sex: Female
  Weight: 86.1834 kg

DRUGS (2)
  1. ZETIA [Suspect]
     Indication: LOW DENSITY LIPOPROTEIN
     Dosage: ONE TABLET ONCE A DAY PO MONTHS 1/2 TABLET -40 MG TABLET- ONCE A DAY PO
     Route: 048
     Dates: start: 20090228, end: 20090312
  2. ZETIA [Suspect]
     Indication: LOW DENSITY LIPOPROTEIN
     Dosage: ONE TABLET ONCE A DAY PO MONTHS 1/2 TABLET -40 MG TABLET- ONCE A DAY PO
     Route: 048
     Dates: start: 20091001, end: 20100201

REACTIONS (2)
  - ARTHRALGIA [None]
  - MUSCULOSKELETAL PAIN [None]
